FAERS Safety Report 9960832 (Version 1)
Quarter: 2014Q1

REPORT INFORMATION
  Report Type: Spontaneous
  Country: US (occurrence: None)
  Receive Date: 20140127
  Receipt Date: 20140127
  Transmission Date: 20141002
  Serious: Yes (Death)
  Sender: FDA-Public Use
  Company Number: 1258970

PATIENT
  Age: 77 Year
  Sex: Male

DRUGS (14)
  1. ACTIVASE [Suspect]
     Indication: EMBOLIC STROKE
     Dosage: (72.9 MG, 1 IN 1 AS REQUIRED), INTRAVENOUS (NOT OTHERWISE SPECIFIED)
     Route: 042
     Dates: start: 20130802, end: 20130802
  2. FLEXERIL (UNITED STATES) (CYCLOBENZAPRINE HYDROCHLORIDE) [Concomitant]
  3. VITAMIN B12 (CYANOCOBALAMIN) [Concomitant]
  4. NORCO (HYDROCODONE TARTRATE, PARACETAMOL) [Concomitant]
  5. METHOTREXATE (METHOTREXATE) [Concomitant]
  6. PREDNISONE (PREDNISONE) [Concomitant]
  7. ZOCOR (SIMVASTATIN) [Concomitant]
  8. PROTONIX (UNITED STATES) (PANTOPRAZOLE SODIUM) [Concomitant]
  9. PLAVIX (CLOPIDOGREL BISULFATE) (CLOPIDOGREL BISULFATE) [Concomitant]
  10. SYNTHROID (LEVOTHYROXINE SODIUM) [Concomitant]
  11. COLACE (DOCUSATE SODIUM) [Concomitant]
  12. TOPROL (METOPROLOL SUCCINATE) [Concomitant]
  13. FOLIC ACID (FOLIC ACID) [Concomitant]
  14. CELEXA (UNITED STATES) (CITALOPRAM HYDROBROMIDE) [Concomitant]

REACTIONS (3)
  - Intraventricular haemorrhage [None]
  - Pain in extremity [None]
  - Disorientation [None]
